FAERS Safety Report 15939267 (Version 2)
Quarter: 2019Q4

REPORT INFORMATION
  Report Type: Report from Study
  Country: GB (occurrence: GB)
  Receive Date: 20190208
  Receipt Date: 20191223
  Transmission Date: 20200122
  Serious: Yes (Other)
  Sender: FDA-Public Use
  Company Number: GB-CELGENEUS-GBR-20190103067

PATIENT
  Age: 59 Year
  Sex: Male

DRUGS (3)
  1. THALIDOMIDE [Suspect]
     Active Substance: THALIDOMIDE
     Indication: PLASMA CELL MYELOMA
     Route: 048
  2. CYCLOPHOSPHAMIDE. [Suspect]
     Active Substance: CYCLOPHOSPHAMIDE
     Indication: PLASMA CELL MYELOMA
     Route: 065
  3. DEXAMETHASONE. [Suspect]
     Active Substance: DEXAMETHASONE
     Indication: PLASMA CELL MYELOMA
     Route: 065

REACTIONS (1)
  - Prostate cancer [Not Recovered/Not Resolved]

NARRATIVE: CASE EVENT DATE: 20180621
